FAERS Safety Report 15562374 (Version 1)
Quarter: 2018Q4

REPORT INFORMATION
  Report Type: Spontaneous
  Country: FR (occurrence: FR)
  Receive Date: 20181029
  Receipt Date: 20181029
  Transmission Date: 20190205
  Serious: Yes (Other)
  Sender: FDA-Public Use
  Company Number: FR-SA-2018SA297646

PATIENT

DRUGS (2)
  1. ZOLPIDEM TARTRATE. [Suspect]
     Active Substance: ZOLPIDEM TARTRATE
     Dosage: 240 MG, QD
  2. ZOLPIDEM TARTRATE. [Suspect]
     Active Substance: ZOLPIDEM TARTRATE
     Dosage: 400 MG, QD

REACTIONS (5)
  - Dysarthria [Unknown]
  - Drug abuse [Unknown]
  - Drug dependence [Unknown]
  - Confusional state [Unknown]
  - Energy increased [Unknown]
